FAERS Safety Report 9759680 (Version 1)
Quarter: 2013Q4

REPORT INFORMATION
  Report Type: Spontaneous
  Country: US (occurrence: US)
  Receive Date: 20131216
  Receipt Date: 20131216
  Transmission Date: 20140711
  Serious: No
  Sender: FDA-Public Use
  Company Number: US-GILEAD-2010-0028662

PATIENT
  Age: 44 Year
  Sex: Female
  Weight: 46.72 kg

DRUGS (9)
  1. LETAIRIS [Suspect]
     Indication: PULMONARY ARTERIAL HYPERTENSION
     Route: 048
     Dates: start: 20100403
  2. SINGULAIR [Concomitant]
  3. FLOVENT [Concomitant]
  4. VITAMIN E [Concomitant]
  5. MAGNESIUM [Concomitant]
  6. COQ [Concomitant]
  7. B-COMPLEX [Concomitant]
  8. VITAMIN C [Concomitant]
  9. MULTIVITAMIN [Concomitant]

REACTIONS (3)
  - Swelling [Not Recovered/Not Resolved]
  - Dyspnoea [Not Recovered/Not Resolved]
  - Nasal congestion [Not Recovered/Not Resolved]
